FAERS Safety Report 14511176 (Version 2)
Quarter: 2018Q1

REPORT INFORMATION
  Report Type: Report from Study
  Country: DE (occurrence: DE)
  Receive Date: 20180209
  Receipt Date: 20180308
  Transmission Date: 20180509
  Serious: Yes (Other)
  Sender: FDA-Public Use
  Company Number: DE-EISAI MEDICAL RESEARCH-EC-2018-035142

PATIENT
  Age: 58 Year
  Sex: Female
  Weight: 58.8 kg

DRUGS (1)
  1. HALAVEN [Suspect]
     Active Substance: ERIBULIN MESYLATE
     Indication: BREAST CANCER METASTATIC
     Route: 041
     Dates: start: 20171128

REACTIONS (11)
  - Neutrophil count decreased [Recovered/Resolved]
  - Platelet count decreased [Recovered/Resolved]
  - Hypoaesthesia [Not Recovered/Not Resolved]
  - Allodynia [Recovered/Resolved with Sequelae]
  - Muscular weakness [Not Recovered/Not Resolved]
  - Anaemia [Not Recovered/Not Resolved]
  - Dyspnoea [Recovering/Resolving]
  - Mucosal inflammation [Unknown]
  - Fatigue [Recovering/Resolving]
  - Osteonecrosis of jaw [Recovering/Resolving]
  - Muscle spasms [Recovered/Resolved with Sequelae]

NARRATIVE: CASE EVENT DATE: 20171211
